FAERS Safety Report 5467151-4 (Version None)
Quarter: 2007Q3

REPORT INFORMATION
  Report Type: 
  Country: None (occurrence: None)
  Receive Date: 20070925
  Receipt Date: 20070919
  Transmission Date: 20080115
  Serious: Yes (Other)
  Sender: FDA-Public Use
  Company Number: US-ASTRAZENECA-2007UW22074

PATIENT
  Age: 48 Year
  Sex: Female
  Weight: 74.4 kg

DRUGS (12)
  1. FASLODEX [Suspect]
     Indication: BREAST CANCER METASTATIC
     Route: 030
  2. CITRACAL [Concomitant]
  3. MULTI-VITAMIN [Concomitant]
  4. PROZAC [Concomitant]
  5. SYNTHROID [Concomitant]
  6. ULTRAM [Concomitant]
  7. UNASYN [Concomitant]
  8. VICODIN [Concomitant]
  9. ZYPREXA [Concomitant]
  10. AMBIEN [Concomitant]
  11. ATIVAN [Concomitant]
  12. BENADRYL [Concomitant]

REACTIONS (4)
  - INJECTION SITE ERYTHEMA [None]
  - INJECTION SITE PAIN [None]
  - INJECTION SITE REACTION [None]
  - RASH VESICULAR [None]
